FAERS Safety Report 4349848-2 (Version None)
Quarter: 2004Q2

REPORT INFORMATION
  Report Type: 
  Country: None (occurrence: None)
  Receive Date: 20040426
  Receipt Date: 20040415
  Transmission Date: 20050107
  Serious: Yes (Hospitalization)
  Sender: FDA-Public Use
  Company Number: NO-JNJFOC-20040403243

PATIENT
  Age: 85 Year
  Sex: Female

DRUGS (1)
  1. REMICADE [Suspect]
     Indication: DERMATOMYOSITIS
     Dosage: 100 MG, 1 IN 8 WEEK, INTRAVENOUS
     Route: 042
     Dates: start: 20030101, end: 20040305

REACTIONS (10)
  - BACK PAIN [None]
  - BLOOD CULTURE POSITIVE [None]
  - C-REACTIVE PROTEIN INCREASED [None]
  - ESCHERICHIA INFECTION [None]
  - HAEMOGLOBIN DECREASED [None]
  - NAUSEA [None]
  - OVARIAN NEOPLASM [None]
  - URINARY TRACT INFECTION [None]
  - UROSEPSIS [None]
  - VOMITING [None]
